FAERS Safety Report 18539702 (Version 1)
Quarter: 2020Q4

REPORT INFORMATION
  Report Type: Spontaneous
  Country: US (occurrence: US)
  Receive Date: 20201124
  Receipt Date: 20201124
  Transmission Date: 20210114
  Serious: No
  Sender: FDA-Public Use
  Company Number: US-CADILA HEALTHCARE LIMITED-US-ZYDUS-043181

PATIENT

DRUGS (3)
  1. BOSENTAN 62.5 MG TABLETS [Suspect]
     Active Substance: BOSENTAN
     Dosage: 62.5 MILLIGRAM, BID
     Route: 048
     Dates: start: 20190703
  2. BOSENTAN 62.5 MG TABLETS [Suspect]
     Active Substance: BOSENTAN
     Indication: PULMONARY ARTERIAL HYPERTENSION
     Dosage: 62.5 MILLIGRAM,FREQUENCY :TWICE DAILY
     Route: 048
     Dates: start: 20190703
  3. FOSAMAX [Suspect]
     Active Substance: ALENDRONATE SODIUM
     Indication: PRODUCT USED FOR UNKNOWN INDICATION
     Dosage: FREQUENCY :UNKNOWN
     Route: 065
     Dates: start: 2019, end: 2019

REACTIONS (8)
  - Back pain [Recovered/Resolved]
  - Dyspepsia [Unknown]
  - Gastrooesophageal reflux disease [Unknown]
  - Flatulence [Recovered/Resolved]
  - Gastric dilatation [Unknown]
  - Bone pain [Recovered/Resolved]
  - Constipation [Unknown]
  - Arthralgia [Recovered/Resolved]

NARRATIVE: CASE EVENT DATE: 2019
